FAERS Safety Report 9450587 (Version 1)
Quarter: 2013Q3

REPORT INFORMATION
  Report Type: Spontaneous
  Country: CH (occurrence: CH)
  Receive Date: 20130809
  Receipt Date: 20130809
  Transmission Date: 20140515
  Serious: Yes (Hospitalization)
  Sender: FDA-Public Use
  Company Number: CH-VIIV HEALTHCARE LIMITED-B0914298A

PATIENT
  Age: 53 Year
  Sex: Male

DRUGS (8)
  1. COMBIVIR [Suspect]
     Indication: HIV INFECTION
     Dosage: 150MG TWICE PER DAY
     Route: 048
     Dates: start: 20080811, end: 201303
  2. REMERON [Suspect]
     Indication: DEPRESSION
     Dosage: 45MG PER DAY
     Route: 048
     Dates: end: 201303
  3. VIREAD [Concomitant]
     Indication: HIV INFECTION
     Dosage: 245MG PER DAY
     Route: 048
     Dates: start: 20051231
  4. KALETRA [Concomitant]
     Indication: HIV INFECTION
     Dosage: 50MG FOUR TIMES PER DAY
     Route: 048
     Dates: start: 20080811
  5. BACTRIM [Concomitant]
     Indication: HIV INFECTION
     Dosage: 160MG THREE TIMES PER WEEK
     Route: 048
     Dates: start: 20130313
  6. METHADONE [Concomitant]
     Indication: MENTAL DISORDER
     Dosage: 80MG PER DAY
     Route: 048
  7. DEROXAT [Concomitant]
     Indication: DEPRESSION
     Dosage: 20MG TWICE PER DAY
     Route: 048
  8. STILNOX [Concomitant]
     Indication: SLEEP DISORDER
     Dosage: 10MG AS REQUIRED
     Route: 048

REACTIONS (2)
  - Pancytopenia [Recovering/Resolving]
  - Aplastic anaemia [Recovering/Resolving]
